FAERS Safety Report 10751326 (Version 1)
Quarter: 2015Q1

REPORT INFORMATION
  Report Type: Spontaneous
  Country: US (occurrence: None)
  Receive Date: 20150129
  Receipt Date: 20150129
  Transmission Date: 20150721
  Serious: No
  Sender: FDA-Public Use
  Company Number: None

PATIENT
  Age: 64 Year
  Sex: Female

DRUGS (15)
  1. FOSAMEX [Concomitant]
  2. AMPYRA [Suspect]
     Active Substance: DALFAMPRIDINE
     Indication: MULTIPLE SCLEROSIS
     Route: 048
     Dates: start: 201005
  3. ATENOLOL. [Concomitant]
     Active Substance: ATENOLOL
  4. VITAMIN B12 [Concomitant]
     Active Substance: CYANOCOBALAMIN
  5. VITAMIN D3 [Concomitant]
     Active Substance: CHOLECALCIFEROL
  6. EXTAVIA [Concomitant]
     Active Substance: INTERFERON BETA-1B
  7. VITAMIN B12 [Concomitant]
     Active Substance: CYANOCOBALAMIN
  8. FOSAMEX [Concomitant]
  9. ATENOLOL. [Concomitant]
     Active Substance: ATENOLOL
  10. VITAMIN D3 [Concomitant]
     Active Substance: CHOLECALCIFEROL
  11. COLACE [Concomitant]
     Active Substance: DOCUSATE SODIUM
  12. AMPYRA [Suspect]
     Active Substance: DALFAMPRIDINE
     Indication: MULTIPLE SCLEROSIS
     Route: 048
     Dates: start: 201005
  13. TYLENOL [Concomitant]
     Active Substance: ACETAMINOPHEN
  14. TYLENOL [Concomitant]
     Active Substance: ACETAMINOPHEN
  15. EXTAVIA [Concomitant]
     Active Substance: INTERFERON BETA-1B

REACTIONS (1)
  - Urinary tract infection [None]

NARRATIVE: CASE EVENT DATE: 20140625
